FAERS Safety Report 5034465-1 (Version None)
Quarter: 2006Q2

REPORT INFORMATION
  Report Type: 
  Country: None (occurrence: None)
  Receive Date: 20060620
  Receipt Date: 20060609
  Transmission Date: 20061013
  Serious: Yes (Hospitalization, Other)
  Sender: FDA-Public Use
  Company Number: 2006071656

PATIENT
  Age: 65 Year
  Sex: Male

DRUGS (3)
  1. CARDYL (ATORVASTATIN) [Suspect]
     Indication: HYPERCHOLESTEROLAEMIA
     Dosage: 40 MG (40 MG, 1 IN 1 D), ORAL
     Route: 048
  2. ALL OTHER THERAPEUTIC PRODUCTS [Concomitant]
  3. DIOVAN HCT [Concomitant]

REACTIONS (8)
  - BRAIN ABSCESS [None]
  - CEREBROVASCULAR ACCIDENT [None]
  - COMA [None]
  - HEAD INJURY [None]
  - INTRACRANIAL PRESSURE INCREASED [None]
  - MENINGISM [None]
  - SIMPLE PARTIAL SEIZURES [None]
  - SUBDURAL HAEMORRHAGE [None]
